FAERS Safety Report 13964814 (Version 1)
Quarter: 2017Q3

REPORT INFORMATION
  Report Type: Spontaneous
  Country: AU (occurrence: AU)
  Receive Date: 20170913
  Receipt Date: 20170913
  Transmission Date: 20171128
  Serious: Yes (Other)
  Sender: FDA-Public Use
  Company Number: AU-MYLANLABS-2017M1056156

PATIENT
  Age: 35 Year
  Sex: Female

DRUGS (1)
  1. QUETIAPINE. [Suspect]
     Active Substance: QUETIAPINE
     Indication: PERINATAL DEPRESSION
     Dosage: AT NIGHT
     Route: 065

REACTIONS (2)
  - Optic neuropathy [Recovered/Resolved]
  - Angle closure glaucoma [Recovered/Resolved]
